FAERS Safety Report 8485580-1 (Version None)
Quarter: 2012Q2

REPORT INFORMATION
  Report Type: 
  Country: None (occurrence: None)
  Receive Date: 20120627
  Receipt Date: 20120627
  Transmission Date: 20120825
  Serious: Yes (Disabling)
  Sender: FDA-Public Use
  Company Number: None

PATIENT
  Sex: Female

DRUGS (1)
  1. SIMVASTATIN [Suspect]
     Indication: BLOOD CHOLESTEROL INCREASED
     Dosage: 40 MG ONCE A DAY PO
     Route: 048
     Dates: start: 20110801, end: 20111201

REACTIONS (11)
  - ACNE [None]
  - GOITRE [None]
  - MUSCLE SPASMS [None]
  - DIABETES MELLITUS [None]
  - FIBROMYALGIA [None]
  - CARPAL TUNNEL SYNDROME [None]
  - PHARYNGEAL OEDEMA [None]
  - DEMENTIA [None]
  - JAW DISORDER [None]
  - CHROMATURIA [None]
  - SWELLING [None]
